FAERS Safety Report 6184463-X (Version None)
Quarter: 2009Q2

REPORT INFORMATION
  Report Type: 
  Country: None (occurrence: None)
  Receive Date: 20090507
  Receipt Date: 20090507
  Transmission Date: 20091009
  Serious: Yes (Other)
  Sender: FDA-Public Use
  Company Number: None

PATIENT
  Age: 84 Year
  Sex: Male
  Weight: 99.2 kg

DRUGS (1)
  1. METFORMIN 500 MG [Suspect]
     Indication: TYPE 2 DIABETES MELLITUS
     Dosage: TWICE TABS DAILY PO
     Route: 048
     Dates: start: 20040101, end: 20070101

REACTIONS (2)
  - BLOOD GLUCOSE INCREASED [None]
  - PRODUCT SUBSTITUTION ISSUE [None]
